FAERS Safety Report 7367613-9 (Version None)
Quarter: 2011Q1

REPORT INFORMATION
  Report Type: 
  Country: None (occurrence: None)
  Receive Date: 20110309
  Receipt Date: 20110302
  Transmission Date: 20110831
  Serious: Yes (Other)
  Sender: FDA-Public Use
  Company Number: 2011SP009882

PATIENT
  Age: 20 Year
  Sex: Male

DRUGS (1)
  1. REMERON [Suspect]
     Indication: DEPRESSION
     Dosage: 15 MG, PO
     Route: 048
     Dates: start: 20110208

REACTIONS (1)
  - INTENTIONAL SELF-INJURY [None]
